FAERS Safety Report 5575180-5 (Version None)
Quarter: 2007Q4

REPORT INFORMATION
  Report Type: 
  Country: None (occurrence: None)
  Receive Date: 20071227
  Receipt Date: 20071218
  Transmission Date: 20080405
  Serious: Yes (Life-Threatening)
  Sender: FDA-Public Use
  Company Number: FI-PFIZER INC-2007103168

PATIENT
  Sex: Male

DRUGS (16)
  1. ZITHROMAX [Suspect]
     Indication: PNEUMONIA
     Route: 042
     Dates: start: 20071128, end: 20071129
  2. MERONEM [Concomitant]
     Route: 042
  3. ATRODUAL [Concomitant]
     Route: 055
  4. DOBUJECT [Concomitant]
     Dosage: TEXT:15 MG/H
     Route: 042
  5. MIDAZOLAM HCL [Concomitant]
     Dosage: TEXT:15 MG/H
     Route: 042
  6. FENTANYL [Concomitant]
     Dosage: TEXT:200 MICROG/H
     Route: 042
  7. FURESIS [Concomitant]
     Dosage: TEXT:20 MG/H
     Route: 042
  8. HUMULIN R [Concomitant]
     Dosage: DAILY DOSE:6I.U.
     Route: 042
  9. NEURAMIN [Concomitant]
     Dosage: DAILY DOSE:100MG
     Route: 042
  10. NEXIUM [Concomitant]
     Dosage: DAILY DOSE:40MG
     Route: 042
  11. SOLU-MEDROL [Concomitant]
     Dosage: DAILY DOSE:40MG
     Route: 042
  12. LEVOSIMENDAN [Concomitant]
     Route: 042
     Dates: start: 20071128, end: 20071129
  13. NORADRENALINE [Concomitant]
     Route: 042
  14. ZINACEF [Concomitant]
     Route: 042
  15. ROXIBION [Concomitant]
     Route: 048
  16. TAZOCIN [Concomitant]
     Dates: start: 20071101, end: 20071101

REACTIONS (5)
  - CARDIAC FAILURE [None]
  - CARDIAC INDEX DECREASED [None]
  - CARDIOVASCULAR INSUFFICIENCY [None]
  - HYPOTENSION [None]
  - OLIGURIA [None]
